FAERS Safety Report 11924366 (Version 2)
Quarter: 2016Q1

REPORT INFORMATION
  Report Type: Spontaneous
  Country: US (occurrence: US)
  Receive Date: 20160118
  Receipt Date: 20160129
  Transmission Date: 20160526
  Serious: No
  Sender: FDA-Public Use
  Company Number: US-ASTRAZENECA-2016SE03039

PATIENT
  Sex: Male
  Weight: 95.3 kg

DRUGS (3)
  1. HYDROCODONE [Concomitant]
     Active Substance: HYDROCODONE
  2. TUDORZA PRESSAIR [Suspect]
     Active Substance: ACLIDINIUM BROMIDE
     Route: 055
  3. NORCO [Concomitant]
     Active Substance: ACETAMINOPHEN\HYDROCODONE BITARTRATE
     Indication: BACK PAIN
     Route: 048

REACTIONS (6)
  - Ligament sprain [Unknown]
  - Abdominal pain lower [Unknown]
  - Hypoaesthesia [Unknown]
  - Product quality issue [Unknown]
  - Intentional product misuse [Unknown]
  - Head discomfort [Unknown]
